FAERS Safety Report 4319858-X (Version None)
Quarter: 2004Q1

REPORT INFORMATION
  Report Type: 
  Country: None (occurrence: None)
  Receive Date: 20040316
  Receipt Date: 20040306
  Transmission Date: 20041129
  Serious: Yes (Death)
  Sender: FDA-Public Use
  Company Number: US066425

PATIENT
  Age: 61 Year
  Sex: Male

DRUGS (5)
  1. ARANESP [Suspect]
     Indication: ANAEMIA OF MALIGNANT DISEASE
     Dosage: 300 MCG, 1 IN 1 WEEKS
     Dates: start: 20040105, end: 20040212
  2. TYLOX [Concomitant]
  3. FUROSEMIDE [Concomitant]
  4. GABAPENTIN [Concomitant]
  5. CISPLATIN [Concomitant]

REACTIONS (5)
  - ANXIETY [None]
  - CONFUSIONAL STATE [None]
  - MALIGNANT NEOPLASM PROGRESSION [None]
  - OEDEMA [None]
  - WEIGHT INCREASED [None]
